FAERS Safety Report 9607548 (Version 1)
Quarter: 2013Q4

REPORT INFORMATION
  Report Type: Spontaneous
  Country: JP (occurrence: JP)
  Receive Date: 20131009
  Receipt Date: 20131009
  Transmission Date: 20140711
  Serious: Yes (Other)
  Sender: FDA-Public Use
  Company Number: JP-JNJFOC-20131003102

PATIENT
  Age: 85 Year
  Sex: Female

DRUGS (5)
  1. ITRIZOLE [Suspect]
     Indication: THROMBOPHLEBITIS
     Dosage: 200 MG/ 1 PER 12 HOUR INJECTION
     Route: 041
  2. ITRIZOLE [Suspect]
     Indication: CHOLANGITIS
     Dosage: 200 MG/ 1 PER 12 HOUR INJECTION
     Route: 041
  3. ITRIZOLE [Suspect]
     Indication: THROMBOPHLEBITIS
     Dosage: 200 MG/ 1 PER 12 HOUR INJECTION
     Route: 048
  4. ITRIZOLE [Suspect]
     Indication: CHOLANGITIS
     Dosage: 200 MG/ 1 PER 12 HOUR INJECTION
     Route: 048
  5. MICAFUNGIN [Concomitant]
     Indication: SYSTEMIC CANDIDA
     Route: 041

REACTIONS (2)
  - Renal failure [Unknown]
  - Off label use [Unknown]
